FAERS Safety Report 6124288-4 (Version None)
Quarter: 2009Q1

REPORT INFORMATION
  Report Type: 
  Country: None (occurrence: None)
  Receive Date: 20090317
  Receipt Date: 20090303
  Transmission Date: 20090719
  Serious: Yes (Other)
  Sender: FDA-Public Use
  Company Number: 8043672

PATIENT

DRUGS (1)
  1. KEPPRA [Suspect]
     Indication: CONVULSION

REACTIONS (2)
  - CONDITION AGGRAVATED [None]
  - NEOPLASM MALIGNANT [None]
